FAERS Safety Report 19391464 (Version 1)
Quarter: 2021Q2

REPORT INFORMATION
  Report Type: Spontaneous
  Country: GB (occurrence: GB)
  Receive Date: 20210608
  Receipt Date: 20210608
  Transmission Date: 20210717
  Serious: Yes (Other)
  Sender: FDA-Public Use
  Company Number: GB-PFIZER INC-2021616808

PATIENT
  Age: 70 Year
  Sex: Female
  Weight: 67 kg

DRUGS (4)
  1. GLUCOSAMINE [Concomitant]
     Active Substance: GLUCOSAMINE
  2. GINKGO BILOBA EXTRACT [Concomitant]
     Active Substance: GINKGO
     Dosage: 600 MG, 1X/DAY
  3. SILDENAFIL CITRATE. [Suspect]
     Active Substance: SILDENAFIL CITRATE
     Indication: RAYNAUD^S PHENOMENON
     Dosage: FIRST WEEK ONE TABLET ONCE A DAY. SECOND WEEK 1 TWICE A DAY. THIRD WEEK 1 THREE TIMES A DAY
     Route: 048
     Dates: start: 20201203, end: 20210104
  4. NIFEDIPINE. [Concomitant]
     Active Substance: NIFEDIPINE

REACTIONS (3)
  - Cystitis [Recovered/Resolved]
  - Bladder pain [Recovered/Resolved]
  - Off label use [Unknown]

NARRATIVE: CASE EVENT DATE: 20210103
